FAERS Safety Report 9124731 (Version 1)
Quarter: 2013Q1

REPORT INFORMATION
  Report Type: Spontaneous
  Country: US (occurrence: US)
  Receive Date: 20130227
  Receipt Date: 20130227
  Transmission Date: 20140127
  Serious: No
  Sender: FDA-Public Use
  Company Number: US-AMGEN-USASP2011068612

PATIENT
  Age: 62 Year
  Sex: Male

DRUGS (2)
  1. ENBREL [Suspect]
     Indication: RHEUMATOID ARTHRITIS
     Dosage: 25 MG, 2 TIMES/WK
     Dates: start: 201108
  2. HYDROXYCHLOROQUINE SULFATE [Concomitant]

REACTIONS (5)
  - Malaria [Unknown]
  - Drug interaction [Unknown]
  - Skin lesion [Unknown]
  - Headache [Unknown]
  - Pruritus [Unknown]
